FAERS Safety Report 19867526 (Version 1)
Quarter: 2021Q3

REPORT INFORMATION
  Report Type: Spontaneous
  Country: BE (occurrence: BE)
  Receive Date: 20210921
  Receipt Date: 20210921
  Transmission Date: 20211014
  Serious: Yes (Hospitalization)
  Sender: FDA-Public Use
  Company Number: NVSC2021BE211025

PATIENT
  Age: 82 Year
  Sex: Female

DRUGS (13)
  1. RBC [Concomitant]
     Active Substance: HUMAN RED BLOOD CELL
     Dosage: UNK
     Route: 065
     Dates: start: 20191004, end: 20191004
  2. RBC [Concomitant]
     Active Substance: HUMAN RED BLOOD CELL
     Dosage: UNK
     Route: 065
     Dates: start: 20190705, end: 20190705
  3. RBC [Concomitant]
     Active Substance: HUMAN RED BLOOD CELL
     Dosage: UNK
     Route: 065
     Dates: start: 20190510, end: 20190510
  4. RBC [Concomitant]
     Active Substance: HUMAN RED BLOOD CELL
     Dosage: UNK
     Route: 065
     Dates: start: 20190415, end: 20190415
  5. RBC [Concomitant]
     Active Substance: HUMAN RED BLOOD CELL
     Dosage: UNK
     Route: 065
     Dates: start: 20190329, end: 20190329
  6. RBC [Concomitant]
     Active Substance: HUMAN RED BLOOD CELL
     Dosage: UNK
     Route: 065
     Dates: start: 20190612, end: 20190612
  7. DEXAMETHASONE. [Suspect]
     Active Substance: DEXAMETHASONE
     Indication: PLASMA CELL MYELOMA
     Dosage: 20 MG, QW
     Route: 065
     Dates: start: 20191004, end: 20191115
  8. DEXAMETHASONE. [Suspect]
     Active Substance: DEXAMETHASONE
     Dosage: 20 MG, QW
     Route: 065
     Dates: start: 20190118
  9. POMALIDOMIDE [Suspect]
     Active Substance: POMALIDOMIDE
     Dosage: 84 MG, 28D (4 MILLIGRAM)
     Route: 048
     Dates: start: 20191031, end: 20191115
  10. RBC [Concomitant]
     Active Substance: HUMAN RED BLOOD CELL
     Dosage: UNK
     Route: 065
     Dates: start: 20191117, end: 20191117
  11. RBC [Concomitant]
     Active Substance: HUMAN RED BLOOD CELL
     Indication: ANAEMIA
     Dosage: UNK
     Route: 065
     Dates: start: 20190313, end: 20190313
  12. POMALIDOMIDE [Suspect]
     Active Substance: POMALIDOMIDE
     Indication: PLASMA CELL MYELOMA
     Dosage: 84 MG, 28D (4 MILLIGRAM)
     Route: 048
     Dates: start: 20190118
  13. RBC [Concomitant]
     Active Substance: HUMAN RED BLOOD CELL
     Dosage: UNK
     Route: 065
     Dates: start: 20191030, end: 20191030

REACTIONS (1)
  - COVID-19 [Not Recovered/Not Resolved]

NARRATIVE: CASE EVENT DATE: 20200321
